FAERS Safety Report 7174584-7 (Version None)
Quarter: 2010Q4

REPORT INFORMATION
  Report Type: 
  Country: None (occurrence: None)
  Receive Date: 20101215
  Receipt Date: 20101215
  Transmission Date: 20110411
  Serious: Yes (Other)
  Sender: FDA-Public Use
  Company Number: None

PATIENT
  Age: 85 Year
  Sex: Female
  Weight: 74.8435 kg

DRUGS (1)
  1. TRAVATAN Z [Suspect]
     Indication: GLAUCOMA
     Dosage: 1 DROP BOTH EYES EVENING
     Dates: start: 20100807, end: 20100819

REACTIONS (3)
  - EYE SWELLING [None]
  - EYELID OEDEMA [None]
  - VISION BLURRED [None]
